FAERS Safety Report 22634045 (Version 12)
Quarter: 2024Q2

REPORT INFORMATION
  Report Type: Spontaneous
  Country: DE (occurrence: DE)
  Receive Date: 20230623
  Receipt Date: 20240628
  Transmission Date: 20240715
  Serious: Yes (Other)
  Sender: FDA-Public Use
  Company Number: DE-TAKEDA-2023TUS006610

PATIENT
  Age: 39 Year
  Sex: Female

DRUGS (5)
  1. ENTYVIO [Suspect]
     Active Substance: VEDOLIZUMAB
     Indication: Colitis ulcerative
     Dosage: UNK
     Route: 042
  2. CORTISONE [Suspect]
     Active Substance: CORTISONE
     Indication: Colitis ulcerative
     Dosage: 60 MILLIGRAM
     Route: 065
  3. CORTISONE [Suspect]
     Active Substance: CORTISONE
     Dosage: 100 MILLIGRAM
     Route: 065
  4. SIMPONI [Suspect]
     Active Substance: GOLIMUMAB
     Indication: Colitis ulcerative
     Dosage: UNK
     Route: 065
  5. INFLIXIMAB [Suspect]
     Active Substance: INFLIXIMAB
     Indication: Product used for unknown indication
     Dosage: UNK
     Route: 065

REACTIONS (8)
  - Colitis ulcerative [Unknown]
  - Rosacea [Unknown]
  - Alopecia [Unknown]
  - Drug ineffective [Unknown]
  - Depressed mood [Unknown]
  - Eye inflammation [Unknown]
  - Hypersensitivity [Unknown]
  - Rash [Unknown]
